FAERS Safety Report 6202160-9 (Version None)
Quarter: 2009Q2

REPORT INFORMATION
  Report Type: 
  Country: None (occurrence: None)
  Receive Date: 20090526
  Receipt Date: 20090516
  Transmission Date: 20091009
  Serious: Yes (Death, Other)
  Sender: FDA-Public Use
  Company Number: IN-ELI_LILLY_AND_COMPANY-IN200905003336

PATIENT
  Age: 65 Year
  Sex: Female

DRUGS (1)
  1. XIGRIS [Suspect]
     Indication: UROSEPSIS
     Dosage: UNK, UNKNOWN
     Route: 042
     Dates: start: 20090515

REACTIONS (2)
  - BRADYCARDIA [None]
  - INTERNATIONAL NORMALISED RATIO INCREASED [None]
